FAERS Safety Report 16540739 (Version 2)
Quarter: 2019Q3

REPORT INFORMATION
  Report Type: Spontaneous
  Country: JP (occurrence: JP)
  Receive Date: 20190708
  Receipt Date: 20190719
  Transmission Date: 20191004
  Serious: No
  Sender: FDA-Public Use
  Company Number: JP-PFIZER INC-2019276937

PATIENT
  Sex: Male

DRUGS (6)
  1. SOLANAX [Suspect]
     Active Substance: ALPRAZOLAM
     Dosage: 1.2 MG, UNK
  2. SOLANAX [Suspect]
     Active Substance: ALPRAZOLAM
     Dosage: 0.8 MG, UNK
     Route: 048
  3. SOLANAX [Suspect]
     Active Substance: ALPRAZOLAM
     Dosage: 0.6 MG, UNK
  4. SOLANAX [Suspect]
     Active Substance: ALPRAZOLAM
     Dosage: 0.4 MG, UNK
     Route: 048
  5. SOLANAX [Suspect]
     Active Substance: ALPRAZOLAM
     Dosage: 0.2 MG, DAILY
     Route: 048
     Dates: start: 201904
  6. SOLANAX [Suspect]
     Active Substance: ALPRAZOLAM
     Dosage: 0.1 MG, DAILY
     Route: 048
     Dates: start: 201904

REACTIONS (13)
  - Decreased appetite [Unknown]
  - Heart rate increased [Recovered/Resolved]
  - Blood pressure increased [Recovered/Resolved]
  - Dizziness [Unknown]
  - Hypoaesthesia [Unknown]
  - Malaise [Unknown]
  - Nausea [Unknown]
  - Hyperhidrosis [Recovered/Resolved]
  - Pain [Unknown]
  - Restlessness [Unknown]
  - General physical condition decreased [Unknown]
  - Withdrawal syndrome [Unknown]
  - Blood pressure decreased [Unknown]

NARRATIVE: CASE EVENT DATE: 20190627
